FAERS Safety Report 5604344-7 (Version None)
Quarter: 2008Q1

REPORT INFORMATION
  Report Type: 
  Country: None (occurrence: None)
  Receive Date: 20080123
  Receipt Date: 20080123
  Transmission Date: 20080703
  Serious: Yes (Life-Threatening)
  Sender: FDA-Public Use
  Company Number: None

PATIENT
  Age: 65 Year
  Sex: Female

DRUGS (1)
  1. BONIVA [Suspect]
     Indication: OSTEOPOROSIS
     Dosage: 3MG Q3MONTH IV BOLUS SINGLE DOSE KIT
     Route: 040
     Dates: start: 20080122, end: 20080122

REACTIONS (5)
  - BLOOD PRESSURE DECREASED [None]
  - CHOKING [None]
  - DIZZINESS [None]
  - DYSPNOEA [None]
  - NAUSEA [None]
